FAERS Safety Report 5649574-3 (Version None)
Quarter: 2008Q1

REPORT INFORMATION
  Report Type: 
  Country: None (occurrence: None)
  Receive Date: 20080304
  Receipt Date: 20080221
  Transmission Date: 20080703
  Serious: Yes (Other)
  Sender: FDA-Public Use
  Company Number: US-PFIZER INC-2008017303

PATIENT

DRUGS (1)
  1. CHANTIX [Suspect]

REACTIONS (4)
  - AGITATION [None]
  - AMNESIA [None]
  - HALLUCINATION [None]
  - PARANOIA [None]
